FAERS Safety Report 9785926 (Version 1)
Quarter: 2013Q4

REPORT INFORMATION
  Report Type: Spontaneous
  Country: US (occurrence: US)
  Receive Date: 20131227
  Receipt Date: 20131227
  Transmission Date: 20140711
  Serious: Yes (Other)
  Sender: FDA-Public Use
  Company Number: US-FRI-1000052496

PATIENT
  Age: 50 Year
  Sex: Female

DRUGS (3)
  1. VIIBRYD [Suspect]
  2. VIIBRYD [Suspect]
  3. METOPROLOL [Concomitant]

REACTIONS (1)
  - Colitis [Unknown]
